FAERS Safety Report 5280835-6 (Version None)
Quarter: 2007Q1

REPORT INFORMATION
  Report Type: 
  Country: None (occurrence: None)
  Receive Date: 20070329
  Receipt Date: 20070228
  Transmission Date: 20070707
  Serious: Yes (Other)
  Sender: FDA-Public Use
  Company Number: 2006UW24438

PATIENT
  Age: 49 Year
  Sex: Female
  Weight: 137.3 kg

DRUGS (7)
  1. SEROQUEL [Suspect]
     Indication: PSYCHOTIC DISORDER
     Route: 048
     Dates: start: 20000101, end: 20061101
  2. SEROQUEL [Suspect]
     Indication: POST-TRAUMATIC STRESS DISORDER
     Route: 048
     Dates: start: 20000101, end: 20061101
  3. ZYPREXA [Suspect]
     Dates: start: 19990101, end: 20020101
  4. ABILIFY [Concomitant]
  5. GEODON [Concomitant]
  6. RISPERDAL [Concomitant]
  7. STELAZINE [Concomitant]

REACTIONS (3)
  - DIABETES MELLITUS [None]
  - NEUROPATHY [None]
  - WEIGHT INCREASED [None]
